FAERS Safety Report 8408875-6 (Version None)
Quarter: 2012Q2

REPORT INFORMATION
  Report Type: 
  Country: None (occurrence: None)
  Receive Date: 20120604
  Receipt Date: 20120316
  Transmission Date: 20120825
  Serious: No
  Sender: FDA-Public Use
  Company Number: US-NOVEN-12US004317

PATIENT
  Sex: Male

DRUGS (1)
  1. DAYTRANA [Suspect]
     Indication: ATTENTION DEFICIT/HYPERACTIVITY DISORDER
     Dosage: 30 MG, UNK
     Route: 062
     Dates: start: 20120316, end: 20120316

REACTIONS (5)
  - VOMITING [None]
  - DECREASED APPETITE [None]
  - APPLICATION SITE ERYTHEMA [None]
  - LETHARGY [None]
  - INCORRECT DRUG ADMINISTRATION DURATION [None]
